FAERS Safety Report 8454761-5 (Version None)
Quarter: 2012Q2

REPORT INFORMATION
  Report Type: 
  Country: None (occurrence: None)
  Receive Date: 20120621
  Receipt Date: 20120615
  Transmission Date: 20120825
  Serious: Yes (Death, Hospitalization, Other)
  Sender: FDA-Public Use
  Company Number: GB-JNJFOC-20120314834

PATIENT
  Sex: Male
  Weight: 59 kg

DRUGS (1)
  1. ZYTIGA [Suspect]
     Indication: PROSTATE CANCER
     Route: 048
     Dates: start: 20120228, end: 20120427

REACTIONS (3)
  - MUSCULAR WEAKNESS [None]
  - CAUDA EQUINA SYNDROME [None]
  - PROSTATE CANCER [None]
